FAERS Safety Report 8215647-4 (Version None)
Quarter: 2012Q1

REPORT INFORMATION
  Report Type: 
  Country: None (occurrence: None)
  Receive Date: 20120313
  Receipt Date: 20120302
  Transmission Date: 20120608
  Serious: Yes (Hospitalization, Other)
  Sender: FDA-Public Use
  Company Number: VER-2012-00068

PATIENT
  Age: 50 Year
  Sex: Female
  Weight: 129.2752 kg

DRUGS (27)
  1. LISINOPRIL [Concomitant]
  2. SIMVASTATIM (SIMVASTATIN) [Concomitant]
  3. ESOMEPRAZOLE MAGNESIUM [Concomitant]
  4. ADVAIR HFA [Concomitant]
  5. METOLAZONE [Concomitant]
  6. GABAPENTIN [Concomitant]
  7. FLUCONAZOLE [Concomitant]
  8. CELEXA [Concomitant]
  9. TIOTROPIUM (TIOTROPIUM) [Concomitant]
  10. CYCLOSET [Suspect]
     Indication: TYPE 2 DIABETES MELLITUS
     Dosage: SEE IMAGE ORAL
     Route: 048
     Dates: start: 20111208, end: 20111211
  11. CYCLOSET [Suspect]
     Indication: TYPE 2 DIABETES MELLITUS
     Dosage: SEE IMAGE ORAL
     Route: 048
     Dates: start: 20120131, end: 20120208
  12. CYCLOSET [Suspect]
     Indication: TYPE 2 DIABETES MELLITUS
     Dosage: SEE IMAGE ORAL
     Route: 048
     Dates: start: 20111211, end: 20111214
  13. CYCLOSET [Suspect]
     Indication: TYPE 2 DIABETES MELLITUS
     Dosage: SEE IMAGE ORAL
     Route: 048
     Dates: start: 20120209, end: 20120215
  14. CYCLOSET [Suspect]
     Indication: TYPE 2 DIABETES MELLITUS
     Dosage: SEE IMAGE ORAL
     Route: 048
     Dates: start: 20120216, end: 20120224
  15. CYCLOSET [Suspect]
     Indication: TYPE 2 DIABETES MELLITUS
     Dosage: SEE IMAGE ORAL
     Route: 048
     Dates: start: 20120103, end: 20120130
  16. CYCLOSET [Suspect]
     Indication: TYPE 2 DIABETES MELLITUS
     Dosage: SEE IMAGE ORAL
     Route: 048
     Dates: start: 20111221, end: 20111228
  17. CYCLOSET [Suspect]
     Indication: TYPE 2 DIABETES MELLITUS
     Dosage: SEE IMAGE ORAL
     Route: 048
     Dates: start: 20111215, end: 20111221
  18. CYCLOSET [Suspect]
     Indication: TYPE 2 DIABETES MELLITUS
     Dosage: SEE IMAGE ORAL
     Route: 048
     Dates: start: 20120224
  19. ASP NPH/ASPART 70/30 (INSULIN ASPART, INSULIN ASPART PROTAMINE) [Concomitant]
  20. FUROSEMIDE (FUROSEMIDE) [Concomitant]
  21. VICODIN (PARACETAMIOL, HYDROCODONE BITARTRATE) [Concomitant]
  22. ALBUTEROL [Concomitant]
  23. SENNA-DOCUSATE (SENNA ALEXANDRINA) [Concomitant]
  24. METFORMIN HCL [Concomitant]
  25. METOPROLOL XL (METOPROLOL) [Concomitant]
  26. POTASSIUM CHLORIDE [Concomitant]
  27. ASPIRIN [Concomitant]

REACTIONS (4)
  - HYPOTENSION [None]
  - CONDITION AGGRAVATED [None]
  - HYPOGLYCAEMIA [None]
  - CARDIAC FAILURE CONGESTIVE [None]
